FAERS Safety Report 14892931 (Version 1)
Quarter: 2018Q2

REPORT INFORMATION
  Report Type: Spontaneous
  Country: CA (occurrence: CA)
  Receive Date: 20180514
  Receipt Date: 20180514
  Transmission Date: 20180711
  Serious: Yes (Other)
  Sender: FDA-Public Use
  Company Number: CA-ABBVIE-18K-028-2353461-00

PATIENT
  Sex: Female

DRUGS (5)
  1. ENBREL [Suspect]
     Active Substance: ETANERCEPT
     Indication: PSORIATIC ARTHROPATHY
     Route: 065
     Dates: start: 20020215, end: 2017
  2. HUMIRA [Suspect]
     Active Substance: ADALIMUMAB
     Indication: PSORIATIC ARTHROPATHY
     Route: 058
  3. COSENTYX [Suspect]
     Active Substance: SECUKINUMAB
     Indication: PRODUCT USED FOR UNKNOWN INDICATION
     Route: 065
  4. CIMZIA [Concomitant]
     Active Substance: CERTOLIZUMAB PEGOL
     Indication: PSORIATIC ARTHROPATHY
  5. REMICADE [Concomitant]
     Active Substance: INFLIXIMAB
     Indication: PSORIATIC ARTHROPATHY

REACTIONS (6)
  - Bronchitis [Unknown]
  - Mobility decreased [Unknown]
  - Joint swelling [Unknown]
  - Psoriatic arthropathy [Not Recovered/Not Resolved]
  - Drug ineffective [Unknown]
  - Intercepted drug prescribing error [Unknown]
